FAERS Safety Report 8252553-3 (Version None)
Quarter: 2012Q2

REPORT INFORMATION
  Report Type: 
  Country: None (occurrence: None)
  Receive Date: 20120402
  Receipt Date: 20111108
  Transmission Date: 20120825
  Serious: No
  Sender: FDA-Public Use
  Company Number: US-ABBOTT-11P-163-0873647-00

PATIENT
  Age: 72 Year
  Sex: Male

DRUGS (18)
  1. TAMSULOSIN HCL [Concomitant]
     Indication: POLLAKIURIA
     Route: 048
  2. SIMVASTATIN [Concomitant]
     Indication: BLOOD CHOLESTEROL INCREASED
  3. ANDROGEL [Suspect]
     Indication: BLOOD TESTOSTERONE DECREASED
     Route: 061
     Dates: start: 20111104
  4. FOLIC ACID [Concomitant]
     Indication: PSORIASIS
  5. CARVEDILOL [Concomitant]
     Indication: HYPERTENSION
  6. COQ10 [Concomitant]
     Indication: PRODUCT USED FOR UNKNOWN INDICATION
  7. CHONDRATIN [Concomitant]
     Indication: PRODUCT USED FOR UNKNOWN INDICATION
  8. LASIX [Concomitant]
     Indication: FLUID RETENTION
  9. ASPIRIN [Concomitant]
     Indication: PRODUCT USED FOR UNKNOWN INDICATION
     Route: 048
  10. VITAMIN D [Concomitant]
     Indication: PRODUCT USED FOR UNKNOWN INDICATION
  11. GLUCOSAMINE CHONDROITIN [Concomitant]
     Indication: PRODUCT USED FOR UNKNOWN INDICATION
  12. ZELATAN [Concomitant]
     Indication: EYE DISORDER
     Route: 047
  13. LASIX [Concomitant]
     Indication: CARDIAC FAILURE CONGESTIVE
  14. FISH OIL [Concomitant]
     Indication: PRODUCT USED FOR UNKNOWN INDICATION
  15. NORVASC [Concomitant]
     Indication: HYPERTENSION
  16. BENAZEPRIL W/HYDROCHLOROTHIAZIDE [Concomitant]
     Indication: HYPERTENSION
  17. KLOR-CON [Concomitant]
     Indication: PRODUCT USED FOR UNKNOWN INDICATION
  18. MULTI-VITAMINS [Concomitant]
     Indication: PRODUCT USED FOR UNKNOWN INDICATION

REACTIONS (2)
  - POLLAKIURIA [None]
  - URINARY INCONTINENCE [None]
